FAERS Safety Report 20219928 (Version 4)
Quarter: 2022Q2

REPORT INFORMATION
  Report Type: Spontaneous
  Country: CH (occurrence: CH)
  Receive Date: 20211222
  Receipt Date: 20220418
  Transmission Date: 20220720
  Serious: No
  Sender: FDA-Public Use
  Company Number: CH-JNJFOC-20211208044

PATIENT
  Sex: Female
  Weight: 96 kg

DRUGS (1)
  1. TREMFYA [Suspect]
     Active Substance: GUSELKUMAB
     Indication: Psoriatic arthropathy
     Route: 065

REACTIONS (4)
  - Device leakage [Unknown]
  - Device issue [Unknown]
  - Product dose omission issue [Unknown]
  - Drug ineffective [Unknown]
